FAERS Safety Report 10584492 (Version 1)
Quarter: 2014Q4

REPORT INFORMATION
  Report Type: Spontaneous
  Country: US (occurrence: None)
  Receive Date: 20141113
  Receipt Date: 20141113
  Transmission Date: 20150529
  Serious: Yes (Other)
  Sender: FDA-Public Use
  Company Number: None

PATIENT
  Age: 55 Year
  Sex: Female

DRUGS (1)
  1. MONTELUKAST [Suspect]
     Active Substance: MONTELUKAST SODIUM
     Indication: ASTHMA
     Dosage: 1 TAB AT BEDTIME TAKEN BY MOUTH??DURING SPRING- SUMMER
     Route: 048

REACTIONS (4)
  - Insomnia [None]
  - Paraesthesia [None]
  - Nightmare [None]
  - Restless legs syndrome [None]

NARRATIVE: CASE EVENT DATE: 20140801
